FAERS Safety Report 20101036 (Version 1)
Quarter: 2021Q4

REPORT INFORMATION
  Report Type: Spontaneous
  Country: US (occurrence: None)
  Receive Date: 20211122
  Receipt Date: 20211122
  Transmission Date: 20220303
  Serious: Yes (Hospitalization)
  Sender: FDA-Public Use
  Company Number: None

PATIENT
  Age: 7 Year
  Sex: Male

DRUGS (6)
  1. PULMOZYME [Suspect]
     Active Substance: DORNASE ALFA
     Indication: Cystic fibrosis
     Dosage: OTHER QUANTITY : 2.5 MG/2.5ML;?FREQUENCY : DAILY;?
     Route: 055
     Dates: start: 20191115
  2. MINERALS\VITAMINS [Concomitant]
     Active Substance: MINERALS\VITAMINS
  3. COMPLETE FORMULATION MVI [Concomitant]
  4. PULMOZYME SOL 1MG/ML [Concomitant]
  5. SODIUM CHLOR NEB 7% [Concomitant]
  6. SODIUM CHLORIDE [Concomitant]

REACTIONS (2)
  - Infection [None]
  - Infective pulmonary exacerbation of cystic fibrosis [None]

NARRATIVE: CASE EVENT DATE: 20211106
